FAERS Safety Report 14401482 (Version 1)
Quarter: 2018Q1

REPORT INFORMATION
  Report Type: Spontaneous
  Country: US (occurrence: US)
  Receive Date: 20180115
  Receipt Date: 20180115
  Transmission Date: 20180509
  Serious: Yes (Hospitalization)
  Sender: FDA-Public Use
  Company Number: None

PATIENT
  Sex: Female

DRUGS (7)
  1. LEVOTHYROXINE. [Concomitant]
     Active Substance: LEVOTHYROXINE
  2. VITAMIN D [Concomitant]
     Active Substance: CHOLECALCIFEROL
  3. FISH OIL [Concomitant]
     Active Substance: FISH OIL
  4. SULFASALAZINE. [Concomitant]
     Active Substance: SULFASALAZINE
  5. ALEVE [Concomitant]
     Active Substance: NAPROXEN SODIUM
  6. ENBREL [Suspect]
     Active Substance: ETANERCEPT
     Indication: RHEUMATOID ARTHRITIS
  7. COQ10 [Concomitant]
     Active Substance: UBIDECARENONE

REACTIONS (2)
  - Infection [None]
  - Therapy cessation [None]
